FAERS Safety Report 7708779-8 (Version None)
Quarter: 2011Q3

REPORT INFORMATION
  Report Type: 
  Country: None (occurrence: None)
  Receive Date: 20110824
  Receipt Date: 20110824
  Transmission Date: 20111222
  Serious: Yes (Hospitalization)
  Sender: FDA-Public Use
  Company Number: None

PATIENT
  Sex: Male
  Weight: 98 kg

DRUGS (3)
  1. CARBOPLATIN [Suspect]
     Dosage: 357 MG
  2. BEVACIZUMAB (RHUMAB VEGF) 1470MG [Suspect]
     Dosage: 1470 MG
  3. TAXOL [Suspect]
     Dosage: 367 MG

REACTIONS (8)
  - SINUS TACHYCARDIA [None]
  - MALAISE [None]
  - CARDIO-RESPIRATORY ARREST [None]
  - VENA CAVA THROMBOSIS [None]
  - FALL [None]
  - LOSS OF CONSCIOUSNESS [None]
  - DEEP VEIN THROMBOSIS [None]
  - BRAIN DEATH [None]
